FAERS Safety Report 25570923 (Version 1)
Quarter: 2025Q3

REPORT INFORMATION
  Report Type: Report from Study
  Country: AR (occurrence: AR)
  Receive Date: 20250717
  Receipt Date: 20250717
  Transmission Date: 20251020
  Serious: Yes (Other)
  Sender: ROCHE
  Company Number: AR-ROCHE-10000301576

PATIENT
  Age: 52 Year
  Sex: Female

DRUGS (1)
  1. KADCYLA [Suspect]
     Active Substance: ADO-TRASTUZUMAB EMTANSINE
     Indication: Breast cancer
     Route: 065
     Dates: start: 20220624

REACTIONS (3)
  - Hepatic cyst [Unknown]
  - Brain neoplasm benign [Unknown]
  - Bone neoplasm [Unknown]

NARRATIVE: CASE EVENT DATE: 20250101
